FAERS Safety Report 12552821 (Version 1)
Quarter: 2016Q3

REPORT INFORMATION
  Report Type: Spontaneous
  Country: US (occurrence: None)
  Receive Date: 20160712
  Receipt Date: 20160712
  Transmission Date: 20161109
  Serious: Yes (Hospitalization)
  Sender: FDA-Public Use
  Company Number: None

PATIENT
  Age: 5 Year
  Sex: Male

DRUGS (4)
  1. CREON [Suspect]
     Active Substance: PANCRELIPASE AMYLASE\PANCRELIPASE LIPASE\PANCRELIPASE PROTEASE
     Indication: CYSTIC FIBROSIS
     Dosage: W/MEALS-SNACKS ORAL
     Route: 048
     Dates: start: 20150204
  2. PULMOZYME [Suspect]
     Active Substance: DORNASE ALFA
     Indication: CYSTIC FIBROSIS
     Route: 055
     Dates: start: 20150204
  3. MEPHYTON [Suspect]
     Active Substance: PHYTONADIONE
     Indication: CYSTIC FIBROSIS
     Route: 048
     Dates: start: 20150204
  4. SPORANOX [Suspect]
     Active Substance: ITRACONAZOLE
     Indication: CYSTIC FIBROSIS
     Route: 048
     Dates: start: 20150625

REACTIONS (1)
  - Constipation [None]

NARRATIVE: CASE EVENT DATE: 20160706
